FAERS Safety Report 15011327 (Version 1)
Quarter: 2018Q2

REPORT INFORMATION
  Report Type: Spontaneous
  Country: US (occurrence: US)
  Receive Date: 20180614
  Receipt Date: 20180614
  Transmission Date: 20180711
  Serious: No
  Sender: FDA-Public Use
  Company Number: US-BAYER-2018-113443

PATIENT
  Age: 71 Year
  Sex: Female
  Weight: 83.99 kg

DRUGS (1)
  1. MIRALAX [Suspect]
     Active Substance: POLYETHYLENE GLYCOL 3350
     Indication: GASTROINTESTINAL DISORDER
     Dosage: 1 DF, QD
     Route: 048
     Dates: start: 20180603, end: 20180611

REACTIONS (2)
  - Product prescribing issue [Unknown]
  - Product use issue [None]

NARRATIVE: CASE EVENT DATE: 201806
